FAERS Safety Report 9943953 (Version 2)
Quarter: 2014Q1

REPORT INFORMATION
  Report Type: Spontaneous
  Country: US (occurrence: US)
  Receive Date: 20140303
  Receipt Date: 20140303
  Transmission Date: 20141002
  Serious: No
  Sender: FDA-Public Use
  Company Number: US-GILEAD-2012-0052632

PATIENT
  Sex: 0

DRUGS (6)
  1. RANEXA [Suspect]
     Indication: ANGINA PECTORIS
     Dosage: 500 MG, BID
     Route: 048
  2. METOPROLOL [Concomitant]
  3. NORVASC [Concomitant]
  4. PREMARIN [Concomitant]
  5. SPIRIVA [Concomitant]
  6. VITAMIN B12                        /00056201/ [Concomitant]

REACTIONS (1)
  - Angina pectoris [Unknown]
